FAERS Safety Report 11729955 (Version 40)
Quarter: 2020Q2

REPORT INFORMATION
  Report Type: Report from Study
  Country: US (occurrence: US)
  Receive Date: 20151112
  Receipt Date: 20200520
  Transmission Date: 20200713
  Serious: Yes (Hospitalization, Other)
  Sender: FDA-Public Use
  Company Number: US-ACTELION-A-NJ2015-127076

PATIENT
  Age: 56 Year
  Sex: Female
  Weight: 82.99 kg

DRUGS (36)
  1. OPSUMIT [Suspect]
     Active Substance: MACITENTAN
     Indication: PULMONARY ARTERIAL HYPERTENSION
     Dosage: 10 MG, QD
     Route: 048
     Dates: start: 201504
  2. ADCIRCA [Concomitant]
     Active Substance: TADALAFIL
     Dosage: 40 MG, QD
     Dates: start: 201504
  3. TADALAFIL. [Concomitant]
     Active Substance: TADALAFIL
  4. LEXAPRO [Concomitant]
     Active Substance: ESCITALOPRAM OXALATE
     Dosage: 20 MG, UNK
  5. KLONOPIN [Concomitant]
     Active Substance: CLONAZEPAM
     Dosage: 1 MG, QPM
  6. NEURONTIN [Concomitant]
     Active Substance: GABAPENTIN
     Dosage: 100 MG, TID
     Route: 048
  7. POTASSIUM CHLORIDE. [Concomitant]
     Active Substance: POTASSIUM CHLORIDE
     Dosage: 20 MEQ, QD
  8. ZANTAC [Concomitant]
     Active Substance: RANITIDINE HYDROCHLORIDE
     Dosage: 300 MG, QPM
  9. PROTONIX [Concomitant]
     Active Substance: PANTOPRAZOLE SODIUM
     Dosage: 20 MG, QAM
  10. ZOFRAN [Concomitant]
     Active Substance: ONDANSETRON HYDROCHLORIDE
     Dosage: 4 MG, Q12HRS PM
  11. KLONOPIN [Concomitant]
     Active Substance: CLONAZEPAM
     Dosage: 1 MG, BID
  12. ALBUTEROL. [Concomitant]
     Active Substance: ALBUTEROL
     Dosage: 2 PUFFS, EVERY 6 HRS. PRN
  13. NEURONTIN [Concomitant]
     Active Substance: GABAPENTIN
     Dosage: 600 MG, TID
  14. ATROVENT [Concomitant]
     Active Substance: IPRATROPIUM BROMIDE
     Dosage: 0.03 %, 2 SPRAYS EACH NOSTRIL
  15. CYMBALTA [Concomitant]
     Active Substance: DULOXETINE HYDROCHLORIDE
     Dosage: 30 MG, UNK
  16. OPSUMIT [Suspect]
     Active Substance: MACITENTAN
     Dosage: 10 MG, QD
     Route: 048
  17. VERAPAMIL [Concomitant]
     Active Substance: VERAPAMIL HYDROCHLORIDE
     Dosage: UNK
     Dates: start: 20160426
  18. CEFAZOLIN [Concomitant]
     Active Substance: CEFAZOLIN
     Dosage: UNK
     Dates: start: 20160809
  19. PROTONIX [Concomitant]
     Active Substance: PANTOPRAZOLE SODIUM
     Dosage: 40 MG, BID
  20. FLOLAN [Concomitant]
     Active Substance: EPOPROSTENOL SODIUM
  21. OXYGEN. [Concomitant]
     Active Substance: OXYGEN
  22. PAXIL [Concomitant]
     Active Substance: PAROXETINE HYDROCHLORIDE
     Dosage: 40 MG, QAM
  23. BUSPAR [Concomitant]
     Active Substance: BUSPIRONE HYDROCHLORIDE
     Dosage: 10 MG, BID
  24. REMODULIN [Suspect]
     Active Substance: TREPROSTINIL
     Indication: PRODUCT USED FOR UNKNOWN INDICATION
     Dosage: 24 NG/KG, PER MIN
     Route: 042
     Dates: start: 20161108
  25. ADEMPAS [Interacting]
     Active Substance: RIOCIGUAT
     Indication: PRODUCT USED FOR UNKNOWN INDICATION
     Dosage: UNK
     Route: 065
  26. LIPITOR [Concomitant]
     Active Substance: ATORVASTATIN CALCIUM
     Dosage: 10 MG, QD
     Route: 048
  27. ALDACTONE [Concomitant]
     Active Substance: SPIRONOLACTONE
     Dosage: 25 MG, QD
  28. POTASSIUM CHLORIDE. [Concomitant]
     Active Substance: POTASSIUM CHLORIDE
     Dosage: 20 MG, BID
  29. TEGRETOL [Interacting]
     Active Substance: CARBAMAZEPINE
     Indication: PRODUCT USED FOR UNKNOWN INDICATION
     Dosage: UNK
     Route: 065
  30. ASPIRIN. [Concomitant]
     Active Substance: ASPIRIN
     Dosage: 81 MG, QD
  31. ROCEPHIN [Concomitant]
     Active Substance: CEFTRIAXONE SODIUM
  32. LASIX [Concomitant]
     Active Substance: FUROSEMIDE
     Dosage: 80 MG QAM AND 40 MG QPM
  33. PERCOCET [Concomitant]
     Active Substance: ACETAMINOPHEN\OXYCODONE HYDROCHLORIDE
     Dosage: UNK
     Dates: start: 20160810
  34. OPSUMIT [Suspect]
     Active Substance: MACITENTAN
     Dosage: 10 MG, QD
     Route: 048
  35. LOVENOX [Concomitant]
     Active Substance: ENOXAPARIN SODIUM
     Dosage: UNK
     Dates: start: 20160806
  36. NORVASC [Concomitant]
     Active Substance: AMLODIPINE BESYLATE
     Dosage: 10 MG, QD

REACTIONS (76)
  - Pneumonia [Recovered/Resolved]
  - Pneumonia respiratory syncytial viral [Recovered/Resolved]
  - Productive cough [Recovered/Resolved]
  - Asthenia [Unknown]
  - Infusion site pain [Unknown]
  - Dyspepsia [Not Recovered/Not Resolved]
  - Brain neoplasm [Not Recovered/Not Resolved]
  - Seizure [Unknown]
  - Hypotension [Unknown]
  - Pulmonary arterial hypertension [Unknown]
  - Cough [Recovered/Resolved]
  - Device dislocation [Recovered/Resolved]
  - Catheter management [Recovered/Resolved]
  - Multiple allergies [Unknown]
  - Blood potassium decreased [Unknown]
  - Head injury [Unknown]
  - Contusion [Unknown]
  - Head discomfort [Unknown]
  - Neuralgia [Unknown]
  - Weight decreased [Unknown]
  - Intestinal mass [Unknown]
  - Breast conserving surgery [Unknown]
  - Biopsy [Unknown]
  - Disease progression [Unknown]
  - Chills [Recovered/Resolved]
  - Neurofibromatosis [Unknown]
  - Headache [Unknown]
  - Aspiration [Unknown]
  - Feeding disorder [Unknown]
  - Gait disturbance [Unknown]
  - Fall [Unknown]
  - Stomach mass [Not Recovered/Not Resolved]
  - Wheezing [Recovered/Resolved]
  - Nervous system disorder [Unknown]
  - Muscle spasms [Unknown]
  - Malaise [Recovered/Resolved]
  - Condition aggravated [Unknown]
  - Oxygen saturation abnormal [Unknown]
  - Nasopharyngitis [Unknown]
  - Drug interaction [Unknown]
  - Hyperhidrosis [Recovered/Resolved]
  - Pyrexia [Recovered/Resolved]
  - Secretion discharge [Recovered/Resolved]
  - Chest discomfort [Recovered/Resolved]
  - Syncope [Recovered/Resolved]
  - Spinal disorder [Unknown]
  - Vomiting [Unknown]
  - Orthostatic hypotension [Not Recovered/Not Resolved]
  - Infusion site erythema [Unknown]
  - Infusion site infection [Unknown]
  - Dyspnoea [Recovered/Resolved]
  - Fatigue [Recovered/Resolved]
  - Neoplasm [Unknown]
  - Dyspnoea exertional [Unknown]
  - Diarrhoea [Recovered/Resolved]
  - Hypoxia [Recovered/Resolved]
  - Weight increased [Recovered/Resolved]
  - Chest pain [Unknown]
  - Loss of personal independence in daily activities [Unknown]
  - Oxygen saturation decreased [Unknown]
  - Odynophagia [Unknown]
  - Precancerous lesion excision [Recovered/Resolved]
  - Urinary incontinence [Unknown]
  - Nerve compression [Unknown]
  - Intraductal proliferative breast lesion [Unknown]
  - Gastrooesophageal reflux disease [Not Recovered/Not Resolved]
  - Bronchitis [Unknown]
  - Dizziness [Not Recovered/Not Resolved]
  - Immobile [Unknown]
  - Loss of consciousness [Unknown]
  - Pain in extremity [Unknown]
  - Depression [Unknown]
  - Migraine [Unknown]
  - Unevaluable event [Unknown]
  - Infusion site warmth [Unknown]
  - Vascular device infection [Unknown]

NARRATIVE: CASE EVENT DATE: 20151030
